FAERS Safety Report 7907615-4 (Version None)
Quarter: 2011Q4

REPORT INFORMATION
  Report Type: 
  Country: None (occurrence: None)
  Receive Date: 20111110
  Receipt Date: 20111103
  Transmission Date: 20120403
  Serious: Yes (Other)
  Sender: FDA-Public Use
  Company Number: PHHY2011BR097571

PATIENT
  Sex: Female

DRUGS (2)
  1. EXFORGE [Suspect]
     Dosage: 1 DF (160/5MG), UNK
  2. DIOVAN [Suspect]
     Dosage: 160 MG, UNK

REACTIONS (2)
  - ABASIA [None]
  - LIMB DISCOMFORT [None]
